FAERS Safety Report 14497671 (Version 1)
Quarter: 2018Q1

REPORT INFORMATION
  Report Type: Report from Study
  Country: JP (occurrence: JP)
  Receive Date: 20180207
  Receipt Date: 20180207
  Transmission Date: 20180509
  Serious: Yes (Hospitalization)
  Sender: FDA-Public Use
  Company Number: PHJP2016JP011290

PATIENT
  Age: 18 Year
  Sex: Female
  Weight: 39 kg

DRUGS (6)
  1. RAD001 [Suspect]
     Active Substance: EVEROLIMUS
     Indication: TUBEROUS SCLEROSIS COMPLEX
     Dosage: 12 MG, QD
     Route: 048
     Dates: start: 20140107, end: 20160427
  2. LAMICTAL [Concomitant]
     Active Substance: LAMOTRIGINE
     Indication: EPILEPSY
     Dosage: 50 MG, TID
     Route: 048
     Dates: start: 20160128
  3. DEPAKENE [Concomitant]
     Active Substance: VALPROIC ACID
     Indication: EPILEPSY
     Dosage: 350 MG, TID
     Route: 048
  4. RAD001 [Suspect]
     Active Substance: EVEROLIMUS
     Dosage: 12 MG, QD
     Route: 048
     Dates: start: 20160506
  5. PLACEBO [Suspect]
     Active Substance: UNSPECIFIED INGREDIENT
     Indication: TUBEROUS SCLEROSIS COMPLEX
     Dosage: BLINDED
     Route: 048
     Dates: start: 20130903, end: 20140106
  6. E KEPPRA [Concomitant]
     Active Substance: LEVETIRACETAM
     Indication: EPILEPSY
     Dosage: 750 MG, BID
     Route: 048
     Dates: start: 20150226

REACTIONS (1)
  - Pneumonia [Recovered/Resolved]

NARRATIVE: CASE EVENT DATE: 20160427
